FAERS Safety Report 25103987 (Version 1)
Quarter: 2025Q1

REPORT INFORMATION
  Report Type: Spontaneous
  Country: US (occurrence: US)
  Receive Date: 20250321
  Receipt Date: 20250321
  Transmission Date: 20250408
  Serious: No
  Sender: BIOGEN
  Company Number: US-BIOGEN-2023BI01190169

PATIENT
  Sex: Female

DRUGS (4)
  1. VUMERITY [Suspect]
     Active Substance: DIROXIMEL FUMARATE
     Indication: Relapsing-remitting multiple sclerosis
     Route: 050
     Dates: start: 20230224
  2. VUMERITY [Suspect]
     Active Substance: DIROXIMEL FUMARATE
     Route: 050
  3. IMODIUM A-D [Concomitant]
     Active Substance: LOPERAMIDE HYDROCHLORIDE
     Route: 050
  4. VITAMIN D [Concomitant]
     Active Substance: VITAMIN D NOS
     Route: 050

REACTIONS (9)
  - Product dose omission issue [Unknown]
  - Product dose omission in error [Unknown]
  - Fatigue [Not Recovered/Not Resolved]
  - Flatulence [Unknown]
  - Abdominal discomfort [Recovered/Resolved]
  - Flushing [Unknown]
  - Pruritus [Unknown]
  - Rash [Unknown]
  - Diarrhoea [Recovered/Resolved]

NARRATIVE: CASE EVENT DATE: 20230101
